FAERS Safety Report 6059449-6 (Version None)
Quarter: 2009Q1

REPORT INFORMATION
  Report Type: 
  Country: None (occurrence: None)
  Receive Date: 20090130
  Receipt Date: 20090119
  Transmission Date: 20090719
  Serious: Yes (Hospitalization, Other)
  Sender: FDA-Public Use
  Company Number: PHEH2009US00731

PATIENT
  Sex: Female
  Weight: 50.34 kg

DRUGS (13)
  1. RECLAST [Suspect]
     Indication: OSTEOPOROSIS
     Dosage: UNK
     Dates: start: 20080915
  2. BENICAR HCT [Suspect]
  3. ANTIBIOTICS [Concomitant]
  4. OXYGEN [Concomitant]
  5. FLUTICASONE [Concomitant]
  6. CALCIUM [Concomitant]
     Dosage: 600 MG, BID
  7. NITROFURANTOIN [Concomitant]
     Dosage: 100 MG, QD
  8. CITALOPRAM HYDROBROMIDE [Concomitant]
     Dosage: 20 MG, QD
  9. PULMICORT-100 [Concomitant]
     Dosage: 0.5/2ML, BID
  10. ZOFRAN [Concomitant]
     Dosage: 4 MG, TID
  11. ALBUTEROL SULATE [Concomitant]
     Dosage: UNK
  12. BENICAR [Concomitant]
     Dosage: 40 MG, QD
  13. VITAMIN D [Concomitant]
     Dosage: 1000 U, BID

REACTIONS (22)
  - ARTHRALGIA [None]
  - BALANCE DISORDER [None]
  - BLOOD CREATININE INCREASED [None]
  - BLOOD UREA INCREASED [None]
  - BREATH SOUNDS ABNORMAL [None]
  - CONFUSIONAL STATE [None]
  - CONTUSION [None]
  - COUGH [None]
  - DEHYDRATION [None]
  - DYSPHAGIA [None]
  - DYSPNOEA [None]
  - FALL [None]
  - FATIGUE [None]
  - GOITRE [None]
  - HYPONATRAEMIA [None]
  - KYPHOSIS [None]
  - LEUKOCYTOSIS [None]
  - MUSCULAR WEAKNESS [None]
  - NAUSEA [None]
  - PAIN IN EXTREMITY [None]
  - WHEEZING [None]
  - WHITE BLOOD CELL COUNT INCREASED [None]
